FAERS Safety Report 18238910 (Version 2)
Quarter: 2020Q3

REPORT INFORMATION
  Report Type: Spontaneous
  Country: US (occurrence: US)
  Receive Date: 20200907
  Receipt Date: 20200915
  Transmission Date: 20201103
  Serious: No
  Sender: FDA-Public Use
  Company Number: US-DSJP-DSU-2020-125794

PATIENT
  Sex: Female

DRUGS (1)
  1. OLMESARTAN AG [Suspect]
     Active Substance: OLMESARTAN MEDOXOMIL
     Indication: HYPERTENSION
     Dosage: 1 DF, QD
     Route: 048
     Dates: start: 202002, end: 202005

REACTIONS (6)
  - Weight decreased [Unknown]
  - Pyrexia [Recovered/Resolved]
  - Diarrhoea [Not Recovered/Not Resolved]
  - Euphoric mood [Unknown]
  - Vomiting projectile [Recovered/Resolved]
  - Nausea [Not Recovered/Not Resolved]

NARRATIVE: CASE EVENT DATE: 2020
